FAERS Safety Report 16770826 (Version 2)
Quarter: 2019Q3

REPORT INFORMATION
  Report Type: Spontaneous
  Country: MY (occurrence: MY)
  Receive Date: 20190904
  Receipt Date: 20190906
  Transmission Date: 20191005
  Serious: Yes (Other)
  Sender: FDA-Public Use
  Company Number: MY-ROCHE-2396090

PATIENT
  Sex: Female

DRUGS (5)
  1. FONDAPARINUX [Concomitant]
     Active Substance: FONDAPARINUX
  2. PRADAXA [Suspect]
     Active Substance: DABIGATRAN ETEXILATE MESYLATE
     Indication: CEREBROVASCULAR ACCIDENT PROPHYLAXIS
  3. METALYSE [Suspect]
     Active Substance: TENECTEPLASE
     Indication: ACUTE MYOCARDIAL INFARCTION
     Route: 065
     Dates: start: 201908
  4. PRADAXA [Suspect]
     Active Substance: DABIGATRAN ETEXILATE MESYLATE
     Indication: ATRIAL FIBRILLATION
     Route: 065
  5. ACETYLSALICYLIC ACID;CLOPIDOGREL BISULFATE [Concomitant]

REACTIONS (5)
  - Myocardial infarction [Unknown]
  - Arterial haemorrhage [Unknown]
  - Arterial perforation [Unknown]
  - Subcutaneous haematoma [Unknown]
  - Contraindicated product administered [Unknown]

NARRATIVE: CASE EVENT DATE: 201908
